FAERS Safety Report 9235855 (Version 1)
Quarter: 2013Q1

REPORT INFORMATION
  Report Type: Spontaneous
  Country: US (occurrence: None)
  Receive Date: 20121031
  Receipt Date: 20121031
  Transmission Date: 20140127
  Serious: Yes (Hospitalization)
  Sender: FDA-Public Use
  Company Number: PHEH2012US011672

PATIENT
  Age: 32 Year
  Sex: Female

DRUGS (4)
  1. GILENYA (FTY) CAPSULE, 0.5MG [Suspect]
     Indication: MULTIPLE SCLEROSIS
     Route: 048
     Dates: start: 20120522, end: 20120604
  2. TRILEPTAL (OXCARBAZEPINE) [Concomitant]
  3. CONTRACEPTIVES NOS (NO INGREDIENTS/SUBSTANCES) [Concomitant]
  4. VITAMIN D3 (COLECALCIFEROL) [Concomitant]

REACTIONS (1)
  - Multiple sclerosis relapse [None]
